FAERS Safety Report 14988538 (Version 2)
Quarter: 2018Q3

REPORT INFORMATION
  Report Type: Spontaneous
  Country: US (occurrence: US)
  Receive Date: 20180608
  Receipt Date: 20180711
  Transmission Date: 20181010
  Serious: Yes (Death, Hospitalization, Other)
  Sender: FDA-Public Use
  Company Number: US-ASTRAZENECA-2018SE73656

PATIENT
  Age: 60 Year
  Sex: Male
  Weight: 136 kg

DRUGS (3)
  1. SYMBICORT [Suspect]
     Active Substance: BUDESONIDE\FORMOTEROL FUMARATE DIHYDRATE
     Indication: ASTHMA
     Dosage: 2 PUFFS TWO TIMES A DAY
     Route: 055
     Dates: start: 20121029
  2. ALBUTEROL INHALER [Concomitant]
     Active Substance: ALBUTEROL
     Indication: DYSPNOEA
     Dosage: 2 PUFS UNKNOWN
     Route: 065
     Dates: start: 20121024, end: 20180518
  3. ALBUTEROL INHALER [Concomitant]
     Active Substance: ALBUTEROL
     Indication: SUPPLEMENTATION THERAPY
     Dosage: 2 PUFS UNKNOWN
     Route: 065
     Dates: start: 20121024, end: 20180518

REACTIONS (7)
  - Brain injury [Fatal]
  - Chronic obstructive pulmonary disease [Unknown]
  - Cardiac arrest [Fatal]
  - Hypernatraemia [Unknown]
  - Acute respiratory failure [Fatal]
  - Pneumonia [Unknown]
  - Pneumonia aspiration [Unknown]

NARRATIVE: CASE EVENT DATE: 20180518
